FAERS Safety Report 16487117 (Version 3)
Quarter: 2019Q3

REPORT INFORMATION
  Report Type: Spontaneous
  Country: US (occurrence: US)
  Receive Date: 20190627
  Receipt Date: 20190918
  Transmission Date: 20191004
  Serious: Yes (Other)
  Sender: FDA-Public Use
  Company Number: US-JNJFOC-20190627664

PATIENT
  Sex: Female
  Weight: 87.62 kg

DRUGS (7)
  1. XARELTO [Suspect]
     Active Substance: RIVAROXABAN
     Indication: THROMBOSIS PROPHYLAXIS
     Dosage: 1-2 PER DAY
     Route: 048
     Dates: start: 20180926, end: 201810
  2. TRAMADOL. [Concomitant]
     Active Substance: TRAMADOL
     Indication: PAIN
     Dates: start: 20181015
  3. RANITIDINE. [Concomitant]
     Active Substance: RANITIDINE
  4. XARELTO [Suspect]
     Active Substance: RIVAROXABAN
     Indication: THROMBOSIS
     Route: 048
     Dates: start: 201812
  5. ALPRAZOLAM. [Concomitant]
     Active Substance: ALPRAZOLAM
     Dosage: A COUPLE OF TIMES
  6. CELECOXIB. [Concomitant]
     Active Substance: CELECOXIB
     Dosage: A FEW TIMES
  7. TYLENOL WITH CODEINE [Concomitant]
     Active Substance: ACETAMINOPHEN\CODEINE PHOSPHATE
     Indication: PAIN
     Dosage: AS NEEDED
     Dates: start: 20180925

REACTIONS (3)
  - Weight increased [Not Recovered/Not Resolved]
  - Product label issue [Unknown]
  - Arthralgia [Not Recovered/Not Resolved]
